FAERS Safety Report 14949967 (Version 1)
Quarter: 2018Q2

REPORT INFORMATION
  Report Type: Report from Study
  Country: None (occurrence: US)
  Receive Date: 20180530
  Receipt Date: 20180530
  Transmission Date: 20180711
  Serious: Yes (Other)
  Sender: FDA-Public Use
  Company Number: US-ABBVIE-18K-163-2368684-00

PATIENT
  Age: 43 Year
  Sex: Female

DRUGS (2)
  1. HUMIRA [Suspect]
     Active Substance: ADALIMUMAB
     Indication: HIDRADENITIS
  2. HUMIRA [Suspect]
     Active Substance: ADALIMUMAB
     Indication: BENIGN FAMILIAL PEMPHIGUS
     Route: 058

REACTIONS (11)
  - Tendon rupture [Unknown]
  - Pharyngeal oedema [Not Recovered/Not Resolved]
  - Hypersensitivity [Not Recovered/Not Resolved]
  - Hidradenitis [Not Recovered/Not Resolved]
  - Chest injury [Recovering/Resolving]
  - Limb injury [Recovering/Resolving]
  - Urticaria [Not Recovered/Not Resolved]
  - Infection [Not Recovered/Not Resolved]
  - Nausea [Not Recovered/Not Resolved]
  - Device issue [Unknown]
  - Benign familial pemphigus [Not Recovered/Not Resolved]

NARRATIVE: CASE EVENT DATE: 201711
